FAERS Safety Report 8380542-7 (Version None)
Quarter: 2012Q2

REPORT INFORMATION
  Report Type: 
  Country: None (occurrence: None)
  Receive Date: 20120523
  Receipt Date: 20120206
  Transmission Date: 20120825
  Serious: Yes (Other)
  Sender: FDA-Public Use
  Company Number: BR-ROCHE-713113

PATIENT
  Sex: Female
  Weight: 74 kg

DRUGS (10)
  1. MABTHERA [Suspect]
     Route: 042
  2. HYDROCHLOROTHIAZIDE [Concomitant]
     Indication: DIURETIC THERAPY
  3. UNSPECIFIED DRUG [Concomitant]
  4. ACTEMRA [Suspect]
     Route: 042
     Dates: start: 20100101, end: 20100101
  5. PREDNISOLONE [Concomitant]
  6. MABTHERA [Suspect]
     Indication: RHEUMATOID ARTHRITIS
     Dosage: ROUTE: ENDOVENOUS, FORM: INFUSION, RECEIVED 2 INFUSIONS.
     Route: 042
     Dates: start: 20100501, end: 20110704
  7. METHOTREXATE [Concomitant]
  8. ACTEMRA [Suspect]
     Indication: RHEUMATOID ARTHRITIS
     Dosage: ROUTE: ENDOVENOUS, FORM: INFUSION.
     Route: 042
  9. ACTEMRA [Suspect]
     Route: 042
  10. ACTEMRA [Suspect]
     Route: 042

REACTIONS (11)
  - C-REACTIVE PROTEIN INCREASED [None]
  - RED BLOOD CELL SEDIMENTATION RATE INCREASED [None]
  - HYPERSENSITIVITY [None]
  - PAIN IN EXTREMITY [None]
  - VAGINAL HAEMORRHAGE [None]
  - PAPILLOMA VIRAL INFECTION [None]
  - PNEUMONIA [None]
  - IMMUNODEFICIENCY [None]
  - DRUG INEFFECTIVE [None]
  - HORMONE LEVEL ABNORMAL [None]
  - ANAEMIA [None]
